FAERS Safety Report 5920216-2 (Version None)
Quarter: 2008Q4

REPORT INFORMATION
  Report Type: 
  Country: None (occurrence: None)
  Receive Date: 20081016
  Receipt Date: 20071105
  Transmission Date: 20090506
  Serious: No
  Sender: FDA-Public Use
  Company Number: A0685305A

PATIENT
  Age: 1 Year
  Sex: Male

DRUGS (1)
  1. CEFTIN [Suspect]
     Indication: EAR INFECTION
     Dosage: 3ML TWICE PER DAY
     Route: 048
     Dates: start: 20070920, end: 20070926

REACTIONS (2)
  - OVERDOSE [None]
  - PRODUCT QUALITY ISSUE [None]
